FAERS Safety Report 15256396 (Version 1)
Quarter: 2018Q3

REPORT INFORMATION
  Report Type: Spontaneous
  Country: US (occurrence: US)
  Receive Date: 20180718
  Receipt Date: 20180718
  Transmission Date: 20181010
  Serious: Yes (Hospitalization)
  Sender: FDA-Public Use
  Company Number: None

PATIENT
  Age: 54 Year
  Sex: Female

DRUGS (5)
  1. SIMPONI [Suspect]
     Active Substance: GOLIMUMAB
     Indication: ANKYLOSING SPONDYLITIS
     Route: 058
     Dates: start: 20180531
  2. AMITRIPTYLINE [Concomitant]
     Active Substance: AMITRIPTYLINE
  3. MELOXICAM. [Concomitant]
     Active Substance: MELOXICAM
  4. METHOTREXATE. [Concomitant]
     Active Substance: METHOTREXATE
  5. PILOCARPINE. [Concomitant]
     Active Substance: PILOCARPINE

REACTIONS (3)
  - Hip arthroplasty [None]
  - Injection site reaction [None]
  - Injection site swelling [None]

NARRATIVE: CASE EVENT DATE: 20180709
